FAERS Safety Report 23154247 (Version 1)
Quarter: 2023Q4

REPORT INFORMATION
  Report Type: Spontaneous
  Country: FR (occurrence: FR)
  Receive Date: 20231107
  Receipt Date: 20231107
  Transmission Date: 20240110
  Serious: Yes (Other)
  Sender: FDA-Public Use
  Company Number: FR-SUN PHARMACEUTICAL INDUSTRIES LTD-2023RR-416770

PATIENT
  Age: 60 Year
  Sex: Male
  Weight: 78 kg

DRUGS (15)
  1. SERTRALINE [Suspect]
     Active Substance: SERTRALINE HYDROCHLORIDE
     Indication: Anxiety disorder
     Dosage: 150 MILLIGRAM, DAILY
     Route: 048
     Dates: start: 20221013
  2. TRAMADOL [Suspect]
     Active Substance: TRAMADOL\TRAMADOL HYDROCHLORIDE
     Indication: Osteoarthritis
     Dosage: UNK
     Route: 048
     Dates: start: 20221005, end: 20230224
  3. FEBUXOSTAT [Suspect]
     Active Substance: FEBUXOSTAT
     Indication: Gout
     Dosage: ON MORNING
     Route: 048
     Dates: start: 20220905
  4. LOXAPINE [Suspect]
     Active Substance: LOXAPINE
     Indication: Anxiety disorder
     Dosage: THE EVENING
     Route: 048
     Dates: start: 20221129
  5. LOXAPINE [Suspect]
     Active Substance: LOXAPINE
     Dosage: THE EVENING
     Route: 048
     Dates: start: 20220903, end: 20221013
  6. ALBUTEROL [Concomitant]
     Active Substance: ALBUTEROL
     Indication: Asthma
     Dosage: 1 DOSAGE FORM, 1DOSE/ASNECESSA
     Route: 045
  7. DUPHALAC [Concomitant]
     Active Substance: LACTULOSE
     Indication: Constipation
     Dosage: UNK
     Route: 048
     Dates: start: 20221025
  8. AMLODIPINE [Concomitant]
     Active Substance: AMLODIPINE BESYLATE
     Indication: Hypertension
     Dosage: THE EVENING
     Route: 048
     Dates: start: 20221025
  9. PANTOPRAZOLE [Concomitant]
     Active Substance: PANTOPRAZOLE
     Indication: Gastrooesophageal reflux disease
     Dosage: THE EVENING
     Route: 048
  10. NORMAFIBE [Concomitant]
     Indication: Constipation
     Dosage: UNK
     Route: 048
     Dates: start: 20220922, end: 20230110
  11. IRBESARTAN [Concomitant]
     Active Substance: IRBESARTAN
     Indication: Hypertension
     Dosage: THE MORNING
     Route: 048
     Dates: start: 20220903
  12. DESLORATADINE [Concomitant]
     Active Substance: DESLORATADINE
     Indication: Hypersensitivity
     Dosage: THE MORNING
     Route: 048
  13. SYMBICORT [Concomitant]
     Active Substance: BUDESONIDE\FORMOTEROL FUMARATE DIHYDRATE
     Indication: Asthma
     Dosage: MORNING AND EVENING
     Route: 045
     Dates: start: 20220903
  14. GAVISCON [Concomitant]
     Active Substance: ALUMINUM HYDROXIDE\MAGNESIUM CARBONATE
     Indication: Gastrooesophageal reflux disease
     Dosage: 3 DOSAGE FORM, DAILY
     Route: 048
  15. HYDROCHLOROTHIAZIDE [Concomitant]
     Active Substance: HYDROCHLOROTHIAZIDE
     Indication: Hypertension
     Dosage: THE MORNING
     Route: 048

REACTIONS (2)
  - Urinary retention [Recovered/Resolved]
  - Dysuria [Recovering/Resolving]

NARRATIVE: CASE EVENT DATE: 20221006
